FAERS Safety Report 9120397 (Version 3)
Quarter: 2013Q4

REPORT INFORMATION
  Report Type: Spontaneous
  Country: US (occurrence: US)
  Receive Date: 20130226
  Receipt Date: 20131028
  Transmission Date: 20140711
  Serious: Yes (Death, Hospitalization)
  Sender: FDA-Public Use
  Company Number: US-B.I. PHARMACEUTICALS,INC./RIDGEFIELD-2013-BI-04806BP

PATIENT
  Age: 65 Year
  Sex: Male
  Weight: 108.86 kg

DRUGS (9)
  1. PRADAXA [Suspect]
     Indication: ATRIAL FIBRILLATION
     Dosage: 300 MG
     Route: 048
     Dates: start: 20110310, end: 20110317
  2. METFORMIN HYDROCHLORIDE [Concomitant]
     Dosage: 2550 MG
     Route: 048
  3. METOPROLOL TARTRATE [Concomitant]
     Dosage: 100 MG
     Route: 048
  4. PRINZIDE [Concomitant]
  5. ALBUTEROL [Concomitant]
  6. ASPIRIN [Concomitant]
  7. AMARYL [Concomitant]
  8. ZOCOR [Concomitant]
     Route: 048
  9. LANTUS [Concomitant]
     Route: 058

REACTIONS (1)
  - Cerebral haemorrhage [Fatal]
